FAERS Safety Report 13815075 (Version 1)
Quarter: 2017Q3

REPORT INFORMATION
  Report Type: Spontaneous
  Country: FR (occurrence: FR)
  Receive Date: 20170731
  Receipt Date: 20170731
  Transmission Date: 20171127
  Serious: Yes (Hospitalization, Other)
  Sender: FDA-Public Use
  Company Number: FR-PFIZER INC-2017323268

PATIENT
  Age: 55 Year
  Sex: Female

DRUGS (6)
  1. SUBUTEX [Concomitant]
     Active Substance: BUPRENORPHINE HYDROCHLORIDE
     Dosage: 12 MG, DAILY
  2. NOCTAMIDE [Concomitant]
     Active Substance: LORMETAZEPAM
     Dosage: UNK
  3. IXPRIM [Concomitant]
     Active Substance: ACETAMINOPHEN\TRAMADOL HYDROCHLORIDE
     Dosage: UNK
  4. XANAX [Suspect]
     Active Substance: ALPRAZOLAM
     Dosage: 16 X 0.5 MG, PER DAY
     Route: 048
  5. STILNOX [Suspect]
     Active Substance: ZOLPIDEM TARTRATE
     Dosage: 10 MG, 4X/DAY
     Route: 048
  6. DEROXAT [Concomitant]
     Active Substance: PAROXETINE HYDROCHLORIDE
     Dosage: UNK

REACTIONS (7)
  - Drug dependence [Recovering/Resolving]
  - Cholestasis [Unknown]
  - Tremor [Unknown]
  - Anaemia [Unknown]
  - Disease recurrence [Recovering/Resolving]
  - Hepatocellular injury [Unknown]
  - Drug withdrawal syndrome [Unknown]
